FAERS Safety Report 9048726 (Version 1)
Quarter: 2013Q1

REPORT INFORMATION
  Report Type: Spontaneous
  Country: US (occurrence: US)
  Receive Date: 20130204
  Receipt Date: 20130204
  Transmission Date: 20140127
  Serious: No
  Sender: FDA-Public Use
  Company Number: US-AMGEN-USASP2012081848

PATIENT
  Age: 67 Year
  Sex: Male
  Weight: 90.3 kg

DRUGS (2)
  1. ENBREL [Suspect]
     Indication: ANKYLOSING SPONDYLITIS
     Dosage: 50 MG, QWK
     Route: 058
     Dates: start: 201201, end: 20121217
  2. NAPROXEN [Concomitant]
     Dosage: 500 MG, BID, PRN
     Route: 048
     Dates: start: 201208

REACTIONS (2)
  - Condition aggravated [Recovered/Resolved]
  - Drug effect incomplete [Not Recovered/Not Resolved]
